FAERS Safety Report 6984976-4 (Version None)
Quarter: 2010Q3

REPORT INFORMATION
  Report Type: 
  Country: None (occurrence: None)
  Receive Date: 20100915
  Receipt Date: 20100527
  Transmission Date: 20110219
  Serious: Yes (Life-Threatening, Hospitalization, Disabling, Other)
  Sender: FDA-Public Use
  Company Number: PHEH2010US03036

PATIENT
  Sex: Female
  Weight: 44.444 kg

DRUGS (12)
  1. ZOMETA [Suspect]
     Indication: MULTIPLE MYELOMA
     Dosage: 3.3 MG, ONCE/SINGLE
     Dates: start: 20100202, end: 20100202
  2. REVLIMID [Concomitant]
     Dosage: 10 MG, QD
  3. REVLIMID [Concomitant]
     Dosage: 10 MG, QOD
  4. LISINOPRIL [Concomitant]
     Dosage: 5 MG, QD
  5. REGLAN [Concomitant]
     Dosage: 50 MG, QD
  6. LIPITOR [Concomitant]
     Dosage: 10 MG, QD
  7. TYLENOL [Concomitant]
     Dosage: 325 MG, PRN
  8. PROTONIX [Concomitant]
     Dosage: 40 MG, QD
  9. OSCAL [Concomitant]
     Dosage: UNK
  10. MYLANTA [Concomitant]
     Dosage: UNK
  11. LUMIGAN [Concomitant]
     Dosage: 0.03% QPM
  12. MULTI-VITAMINS [Concomitant]
     Dosage: 1 DF, QD

REACTIONS (15)
  - ANAEMIA [None]
  - ASTHENIA [None]
  - AZOTAEMIA [None]
  - DECREASED APPETITE [None]
  - DIALYSIS [None]
  - FATIGUE [None]
  - HYPOGAMMAGLOBULINAEMIA [None]
  - HYPONATRAEMIA [None]
  - MULTIPLE MYELOMA [None]
  - NAUSEA [None]
  - PCO2 INCREASED [None]
  - PLATELET COUNT DECREASED [None]
  - RENAL FAILURE ACUTE [None]
  - RENAL TUBULAR NECROSIS [None]
  - VOMITING [None]
